FAERS Safety Report 8213719-1 (Version None)
Quarter: 2012Q1

REPORT INFORMATION
  Report Type: 
  Country: None (occurrence: None)
  Receive Date: 20120315
  Receipt Date: 20120306
  Transmission Date: 20120608
  Serious: Yes (Hospitalization, Other)
  Sender: FDA-Public Use
  Company Number: US-ASTRAZENECA-2011SE49218

PATIENT
  Age: 92 Year
  Sex: Female

DRUGS (2)
  1. FASLODEX [Suspect]
     Route: 030
  2. TAMOXIFEN CITRATE [Suspect]
     Route: 048

REACTIONS (3)
  - CARDIAC FAILURE CONGESTIVE [None]
  - ATRIAL FIBRILLATION [None]
  - CARDIAC DISORDER [None]
